FAERS Safety Report 8909738 (Version 1)
Quarter: 2012Q4

REPORT INFORMATION
  Report Type: 
  Country: BR (occurrence: BR)
  Receive Date: 20121115
  Receipt Date: 20121115
  Transmission Date: 20130627
  Serious: Yes (Hospitalization, Disabling)
  Sender: FDA-Public Use
  Company Number: BR-ASTRAZENECA-2012SE77194

PATIENT
  Age: 598 Month
  Sex: Female
  Weight: 61 kg

DRUGS (4)
  1. ATACAND COMB [Suspect]
     Indication: HYPERTENSION
     Dosage: 16+2.5 MG, OD
     Route: 048
  2. ATACAND HCT [Suspect]
     Indication: HYPERTENSION
     Dosage: 8+12.5 MG HALF TABLET OD
     Route: 048
  3. UNKNOWN [Concomitant]
     Indication: ANXIETY
     Route: 048
  4. UNKNOWN [Concomitant]
     Indication: NERVOUSNESS
     Route: 048

REACTIONS (4)
  - Upper limb fracture [Recovering/Resolving]
  - Blood pressure increased [Recovered/Resolved]
  - Dizziness [Recovered/Resolved]
  - Drug ineffective [Unknown]
